FAERS Safety Report 7969355 (Version 4)
Quarter: 2013Q1

REPORT INFORMATION
  Report Type: Spontaneous
  Country: US (occurrence: US)
  Receive Date: 20110601
  Receipt Date: 20130318
  Transmission Date: 20140127
  Serious: Yes (Other)
  Sender: FDA-Public Use
  Company Number: US-ASTRAZENECA-2010SE30384

PATIENT
  Age: 85 Year
  Sex: Female

DRUGS (1)
  1. NEXIUM [Suspect]
     Route: 048

REACTIONS (11)
  - Bladder cancer [Unknown]
  - Visual impairment [Unknown]
  - Blindness unilateral [Unknown]
  - Blindness unilateral [Unknown]
  - Gastrooesophageal reflux disease [Unknown]
  - Amblyopia [Unknown]
  - Coloboma [Unknown]
  - Retinal degeneration [Unknown]
  - Vitreous detachment [Unknown]
  - Gastric disorder [Unknown]
  - Oropharyngeal pain [Unknown]
